FAERS Safety Report 6304187-5 (Version None)
Quarter: 2009Q3

REPORT INFORMATION
  Report Type: 
  Country: None (occurrence: None)
  Receive Date: 20090811
  Receipt Date: 20090730
  Transmission Date: 20100115
  Serious: Yes (Other)
  Sender: FDA-Public Use
  Company Number: FR-RANBAXY-2009RR-26163

PATIENT
  Sex: Female

DRUGS (5)
  1. TRIAMCINOLONE [Suspect]
     Indication: SKIN TEST
  2. PULMICORT [Suspect]
     Indication: SKIN TEST
     Route: 055
  3. BRICANYL [Suspect]
     Route: 055
  4. TRIDESONIT [Suspect]
     Route: 061
  5. BUDESONIDE [Suspect]
     Indication: SKIN TEST

REACTIONS (2)
  - CONJUNCTIVITIS [None]
  - DERMATITIS CONTACT [None]
